FAERS Safety Report 17676071 (Version 2)
Quarter: 2020Q2

REPORT INFORMATION
  Report Type: Report from Study
  Country: FR (occurrence: FR)
  Receive Date: 20200416
  Receipt Date: 20200428
  Transmission Date: 20200714
  Serious: Yes (Other)
  Sender: FDA-Public Use
  Company Number: FR-EMD SERONO-9157108

PATIENT
  Age: 63 Year
  Sex: Male
  Weight: 80 kg

DRUGS (3)
  1. KALETRA [Suspect]
     Active Substance: LOPINAVIR\RITONAVIR
     Indication: CORONAVIRUS INFECTION
     Dosage: 400/100 MG
     Route: 048
     Dates: start: 20200403, end: 20200403
  2. CEFOTAXIME [Concomitant]
     Active Substance: CEFOTAXIME SODIUM
     Indication: BACTERIAL INFECTION
     Dosage: 6 G/DAY
     Route: 042
     Dates: start: 20200402
  3. REBIF [Suspect]
     Active Substance: INTERFERON BETA-1A
     Indication: CORONAVIRUS INFECTION
     Route: 058
     Dates: start: 20200403, end: 20200403

REACTIONS (4)
  - Pyrexia [Recovered/Resolved]
  - Hypertension [Recovered/Resolved]
  - Hyperlactacidaemia [Recovered/Resolved]
  - Oxygen saturation decreased [Recovered/Resolved]

NARRATIVE: CASE EVENT DATE: 20200403
